FAERS Safety Report 9410415 (Version 1)
Quarter: 2013Q3

REPORT INFORMATION
  Report Type: Spontaneous
  Country: FI (occurrence: FI)
  Receive Date: 20130719
  Receipt Date: 20130719
  Transmission Date: 20140515
  Serious: Yes (Other)
  Sender: FDA-Public Use
  Company Number: FI-GLAXOSMITHKLINE-B0898383A

PATIENT
  Age: 79 Year
  Sex: Male

DRUGS (1)
  1. DABRAFENIB [Suspect]
     Indication: PRODUCT USED FOR UNKNOWN INDICATION
     Dosage: 150MG TWICE PER DAY
     Route: 065
     Dates: start: 20130507, end: 20130701

REACTIONS (6)
  - Skin toxicity [Unknown]
  - Skin lesion [Unknown]
  - Skin papilloma [Unknown]
  - Metastases to pancreas [Unknown]
  - Metastases to spleen [Unknown]
  - Disease progression [Unknown]
